FAERS Safety Report 16100025 (Version 7)
Quarter: 2020Q1

REPORT INFORMATION
  Report Type: Spontaneous
  Country: PL (occurrence: PL)
  Receive Date: 20190321
  Receipt Date: 20200120
  Transmission Date: 20200409
  Serious: Yes (Hospitalization, Other)
  Sender: FDA-Public Use
  Company Number: PL-MYLANLABS-2019M1025125

PATIENT
  Age: 67 Year
  Sex: Female

DRUGS (18)
  1. TICAGRELOR. [Interacting]
     Active Substance: TICAGRELOR
     Indication: STENT PLACEMENT
  2. ACETYLSALICYLIC ACID [Suspect]
     Active Substance: ASPIRIN
     Indication: ACUTE CORONARY SYNDROME
     Dosage: 100 MILLIGRAM, QD
     Route: 065
  3. ZOLPIDEM [Suspect]
     Active Substance: ZOLPIDEM TARTRATE
     Indication: SLEEP DISORDER
     Dosage: AT BEDTIME 10 MG DAILY, BEFORE SLEEP
     Route: 065
  4. TICAGRELOR. [Interacting]
     Active Substance: TICAGRELOR
     Indication: ACUTE CORONARY SYNDROME
  5. HYDROXYZINE [Interacting]
     Active Substance: HYDROXYZINE HYDROCHLORIDE
     Indication: PRODUCT USED FOR UNKNOWN INDICATION
     Dosage: 50 MILLIGRAM, QD
     Route: 065
  6. ACETYLSALICYLIC ACID [Suspect]
     Active Substance: ASPIRIN
     Indication: STENT PLACEMENT
  7. EPLERENONE. [Concomitant]
     Active Substance: EPLERENONE
     Indication: ACUTE CORONARY SYNDROME
  8. TICAGRELOR. [Interacting]
     Active Substance: TICAGRELOR
     Indication: ACUTE MYOCARDIAL INFARCTION
     Dosage: 180 MILLIGRAM, QD
     Route: 048
  9. PERAZINE [Interacting]
     Active Substance: PERAZINE
     Indication: PRODUCT USED FOR UNKNOWN INDICATION
     Dosage: 200 MILLIGRAM, QD
     Route: 065
  10. ACETYLSALICYLIC ACID [Suspect]
     Active Substance: ASPIRIN
     Indication: ACUTE MYOCARDIAL INFARCTION
  11. EPLERENONE. [Concomitant]
     Active Substance: EPLERENONE
     Indication: ACUTE MYOCARDIAL INFARCTION
  12. ZOFENOPRIL [Concomitant]
     Active Substance: ZOFENOPRIL
     Indication: STENT PLACEMENT
     Dosage: 8 MILLIGRAM, QD
     Route: 065
  13. ZOFENOPRIL [Concomitant]
     Active Substance: ZOFENOPRIL
     Indication: ACUTE CORONARY SYNDROME
  14. ZOLPIDEM [Interacting]
     Active Substance: ZOLPIDEM TARTRATE
     Indication: INSOMNIA
     Dosage: 40 MILLIGRAM, QD
     Route: 065
  15. ZOLPIDEM [Interacting]
     Active Substance: ZOLPIDEM TARTRATE
     Dosage: DOSE REDUCTION OF 1/4 EVERY 10-14 DAYS
     Route: 065
  16. EPLERENONE. [Concomitant]
     Active Substance: EPLERENONE
     Indication: STENT PLACEMENT
     Dosage: 50 MG / DAY
     Route: 065
  17. ZOFENOPRIL [Concomitant]
     Active Substance: ZOFENOPRIL
     Indication: ACUTE MYOCARDIAL INFARCTION
     Dosage: 7.5 MILLIGRAM, QD
     Route: 065
  18. MELATONIN [Interacting]
     Active Substance: MELATONIN
     Indication: INSOMNIA
     Dosage: 5 MILLIGRAM, QD 5 MG AT 10PM
     Route: 065

REACTIONS (14)
  - Tachyphylaxis [Unknown]
  - Intentional product misuse [Unknown]
  - Sleep disorder [Unknown]
  - Attention deficit/hyperactivity disorder [Unknown]
  - Angina pectoris [Unknown]
  - Drug ineffective [Unknown]
  - Overdose [Unknown]
  - Vascular stent thrombosis [Unknown]
  - Drug interaction [Recovered/Resolved]
  - Disturbance in attention [Recovered/Resolved]
  - Therapeutic product effect decreased [Unknown]
  - Hypoaesthesia [Unknown]
  - Memory impairment [Recovered/Resolved]
  - Drug abuse [Unknown]
